FAERS Safety Report 6403502-1 (Version None)
Quarter: 2009Q4

REPORT INFORMATION
  Report Type: 
  Country: None (occurrence: None)
  Receive Date: 20091013
  Receipt Date: 20090929
  Transmission Date: 20100525
  Serious: Yes (Hospitalization)
  Sender: FDA-Public Use
  Company Number: AXC-2009-000039

PATIENT
  Age: 10 Year
  Sex: Male

DRUGS (2)
  1. MESALAMINE [Suspect]
     Indication: COLITIS
     Dosage: 500 MG, TID,; 1000 MG,TID,
  2. PREDNISONE TAB [Concomitant]

REACTIONS (8)
  - ASTHENIA [None]
  - COLITIS ULCERATIVE [None]
  - CONDITION AGGRAVATED [None]
  - DIARRHOEA HAEMORRHAGIC [None]
  - FIBROSING COLONOPATHY [None]
  - GASTROINTESTINAL SOUNDS ABNORMAL [None]
  - GENERAL PHYSICAL HEALTH DETERIORATION [None]
  - WEIGHT DECREASED [None]
